FAERS Safety Report 10086457 (Version 3)
Quarter: 2014Q2

REPORT INFORMATION
  Report Type: Spontaneous
  Country: US (occurrence: US)
  Receive Date: 20140418
  Receipt Date: 20140602
  Transmission Date: 20141212
  Serious: No
  Sender: FDA-Public Use
  Company Number: US-TEVA-476234USA

PATIENT
  Age: 56 Year
  Sex: Male
  Weight: 171.16 kg

DRUGS (7)
  1. NUVIGIL [Suspect]
     Indication: NARCOLEPSY
     Route: 048
     Dates: start: 2014, end: 20140401
  2. NUVIGIL [Suspect]
     Indication: SLEEP APNOEA SYNDROME
  3. PROZAC [Concomitant]
     Indication: DEPRESSION
  4. ATENOLOL [Concomitant]
     Indication: HYPERTENSION
  5. GLIMEPIRIDE [Concomitant]
     Indication: DIABETES MELLITUS
  6. SIMVASTATIN [Concomitant]
     Indication: BLOOD CHOLESTEROL
  7. LASIX [Concomitant]
     Indication: DIURETIC THERAPY

REACTIONS (4)
  - Hand deformity [Not Recovered/Not Resolved]
  - Hypoaesthesia [Not Recovered/Not Resolved]
  - Hypersomnia [Not Recovered/Not Resolved]
  - Hyperaesthesia [Not Recovered/Not Resolved]
